FAERS Safety Report 7589027-9 (Version None)
Quarter: 2011Q3

REPORT INFORMATION
  Report Type: 
  Country: None (occurrence: None)
  Receive Date: 20110705
  Receipt Date: 20110628
  Transmission Date: 20111222
  Serious: Yes (Death, Other)
  Sender: FDA-Public Use
  Company Number: GB-SANOFI-AVENTIS-2011SA041397

PATIENT
  Age: 82 Year
  Sex: Male

DRUGS (2)
  1. NEUPOGEN [Concomitant]
     Indication: PROSTATE CANCER
     Dates: start: 20110624
  2. JEVTANA KIT [Suspect]
     Indication: PROSTATE CANCER
     Route: 042
     Dates: start: 20110623, end: 20110623

REACTIONS (2)
  - DEATH [None]
  - GASTRIC HAEMORRHAGE [None]
